FAERS Safety Report 16736883 (Version 1)
Quarter: 2019Q3

REPORT INFORMATION
  Report Type: Spontaneous
  Country: BE (occurrence: BE)
  Receive Date: 20190823
  Receipt Date: 20190823
  Transmission Date: 20191005
  Serious: Yes (Death)
  Sender: FDA-Public Use
  Company Number: BE-ASTRAZENECA-2019SF06592

PATIENT
  Age: 26619 Day
  Sex: Male

DRUGS (1)
  1. IMFINZI [Suspect]
     Active Substance: DURVALUMAB
     Indication: NON-SMALL CELL LUNG CANCER
     Dosage: ONCE SINGLE ADMINISTRATION
     Route: 042
     Dates: start: 20190620

REACTIONS (1)
  - Radiation pneumonitis [Fatal]

NARRATIVE: CASE EVENT DATE: 20190625
